FAERS Safety Report 6170901-5 (Version None)
Quarter: 2009Q2

REPORT INFORMATION
  Report Type: 
  Country: None (occurrence: None)
  Receive Date: 20090427
  Receipt Date: 20090414
  Transmission Date: 20091009
  Serious: Yes (Other)
  Sender: FDA-Public Use
  Company Number: 2009AL002304

PATIENT
  Age: 33 Year
  Sex: Male

DRUGS (4)
  1. CITALOPRAM HYDROBROMIDE [Suspect]
     Dosage: PO
     Route: 048
  2. MIRTAZAPINE [Suspect]
  3. ALCOHOL [Concomitant]
  4. CINNARIZINE [Concomitant]

REACTIONS (4)
  - AGGRESSION [None]
  - ALCOHOL USE [None]
  - AMNESIA [None]
  - HOMICIDE [None]
